FAERS Safety Report 17351673 (Version 2)
Quarter: 2020Q4

REPORT INFORMATION
  Report Type: Spontaneous
  Country: US (occurrence: US)
  Receive Date: 20200130
  Receipt Date: 20201019
  Transmission Date: 20210113
  Serious: No
  Sender: FDA-Public Use
  Company Number: NVSC2020US023123

PATIENT
  Sex: Male

DRUGS (1)
  1. ENTRESTO [Suspect]
     Active Substance: SACUBITRIL\VALSARTAN
     Indication: CARDIAC FAILURE
     Dosage: 100 MG, 49/51 MG UNKNOWN
     Route: 065

REACTIONS (3)
  - Restless legs syndrome [Recovered/Resolved]
  - Nightmare [Recovered/Resolved]
  - Diarrhoea [Recovered/Resolved]
